FAERS Safety Report 12886793 (Version 1)
Quarter: 2016Q4

REPORT INFORMATION
  Report Type: Spontaneous
  Country: US (occurrence: US)
  Receive Date: 20161026
  Receipt Date: 20161026
  Transmission Date: 20170207
  Serious: No
  Sender: FDA-Public Use
  Company Number: US-PRESTIGE BRANDS -1058887

PATIENT
  Age: 32 Year
  Sex: Female

DRUGS (1)
  1. MONISTAT 3 COMBINATION PACK 3 OVULE INSERTS [Suspect]
     Active Substance: MICONAZOLE NITRATE
     Indication: VULVOVAGINAL MYCOTIC INFECTION
     Route: 067
     Dates: start: 20160325, end: 20160325

REACTIONS (8)
  - Urticaria [Not Recovered/Not Resolved]
  - Vulvovaginal burning sensation [Unknown]
  - Hypersensitivity [Not Recovered/Not Resolved]
  - Vulvovaginal discomfort [Unknown]
  - Headache [Unknown]
  - Rash [Not Recovered/Not Resolved]
  - Vulvovaginal pruritus [Unknown]
  - Vulvovaginal pain [Unknown]

NARRATIVE: CASE EVENT DATE: 20160325
